FAERS Safety Report 24430699 (Version 1)
Quarter: 2024Q4

REPORT INFORMATION
  Report Type: Report from Study
  Country: US (occurrence: US)
  Receive Date: 20241013
  Receipt Date: 20241013
  Transmission Date: 20250115
  Serious: Yes (Death)
  Sender: ABBVIE
  Company Number: US-ABBVIE-5960456

PATIENT
  Age: 84 Year
  Sex: Male

DRUGS (3)
  1. DUOPA [Suspect]
     Active Substance: CARBIDOPA\LEVODOPA
     Indication: Parkinson^s disease
     Dosage: 100ML X 7, FORM STRENGTH: 4.63-20 MG, DOSE: 2 CASSETTES FOR UP TO 24 HOURS EACH DAY. MORNING DOSE...
     Route: 050
     Dates: start: 202306
  2. DUOPA [Suspect]
     Active Substance: CARBIDOPA\LEVODOPA
     Indication: Dyskinesia
  3. DUOPA [Suspect]
     Active Substance: CARBIDOPA\LEVODOPA
     Indication: On and off phenomenon

REACTIONS (1)
  - Death [Fatal]

NARRATIVE: CASE EVENT DATE: 20241005
